FAERS Safety Report 4453461-6 (Version None)
Quarter: 2004Q3

REPORT INFORMATION
  Report Type: 
  Country: None (occurrence: None)
  Receive Date: 20040920
  Receipt Date: 20040913
  Transmission Date: 20050211
  Serious: Yes (Death, Other)
  Sender: FDA-Public Use
  Company Number: PHFR2004GB03475

PATIENT
  Age: 52 Year
  Sex: Female

DRUGS (12)
  1. GLEEVEC [Suspect]
     Indication: GASTROINTESTINAL STROMAL TUMOUR
     Dosage: 400MG/DAY
     Route: 048
     Dates: start: 20040211, end: 20040301
  2. MORPHINE [Concomitant]
     Indication: PAIN
     Dosage: 50 MG, BID
     Route: 048
     Dates: start: 20040201, end: 20040304
  3. TAMOXIFEN CITRATE [Concomitant]
     Indication: BREAST CANCER
     Dosage: 20 MG, QD
     Route: 048
     Dates: end: 20040304
  4. SERTRALINE HCL [Concomitant]
     Indication: DEPRESSION
     Dosage: 100 MG, QD
     Route: 048
     Dates: end: 20040304
  5. ZOLPIDEM TARTRATE [Concomitant]
     Indication: SLEEP DISORDER
     Dosage: 5MG/NOCTE
     Route: 048
     Dates: start: 20040201, end: 20040304
  6. GABAPENTIN [Concomitant]
     Indication: NEUROPATHIC PAIN
     Dosage: 600 MG, TID
     Route: 048
     Dates: end: 20040304
  7. IBUPROFEN [Concomitant]
     Indication: PAIN
     Dosage: 400 MG, TID/PRN
     Route: 048
     Dates: start: 20040302, end: 20040304
  8. PARACETAMOL [Concomitant]
     Indication: PYREXIA
     Dosage: 1 G, PRN
     Route: 048
     Dates: start: 20040302, end: 20040304
  9. TEMAZEPAM [Concomitant]
     Indication: SLEEP DISORDER
     Dosage: 10MG/NOCTE
     Route: 048
     Dates: start: 20040302, end: 20040302
  10. SEVREDOL [Concomitant]
     Indication: PAIN
     Dosage: 15 MG, PRN
     Route: 048
     Dates: start: 20040302, end: 20040304
  11. MEGACE [Concomitant]
     Dosage: 160MG/NOCTE
     Route: 048
     Dates: start: 20040201, end: 20040304
  12. MANEVAC [Concomitant]
     Indication: BREAST CANCER
     Dosage: 2UKN/NOCTE
     Route: 048
     Dates: start: 20040201, end: 20040304

REACTIONS (10)
  - ABDOMINAL PAIN [None]
  - CONTUSION [None]
  - HAEMODYNAMIC INSTABILITY [None]
  - HAEMOGLOBIN DECREASED [None]
  - INTRA-ABDOMINAL HAEMORRHAGE [None]
  - LOWER RESPIRATORY TRACT INFECTION [None]
  - PLATELET COUNT DECREASED [None]
  - PLATELET DISORDER [None]
  - PULMONARY OEDEMA [None]
  - TUMOUR HAEMORRHAGE [None]
